FAERS Safety Report 16365669 (Version 1)
Quarter: 2019Q2

REPORT INFORMATION
  Report Type: Spontaneous
  Country: US (occurrence: US)
  Receive Date: 20190422
  Receipt Date: 20190422
  Transmission Date: 20190711
  Serious: Yes (Life-Threatening, Hospitalization)
  Sender: FDA-Public Use
  Company Number: None

PATIENT
  Age: 82 Year
  Sex: Male
  Weight: 119 kg

DRUGS (1)
  1. WARFARIN [Suspect]
     Active Substance: WARFARIN
     Indication: ATRIAL FIBRILLATION
     Dates: start: 20110516, end: 20190409

REACTIONS (4)
  - Cerebrovascular accident [None]
  - Transient ischaemic attack [None]
  - Embolic stroke [None]
  - Ischaemic stroke [None]

NARRATIVE: CASE EVENT DATE: 20190401
